FAERS Safety Report 6732164-9 (Version None)
Quarter: 2010Q2

REPORT INFORMATION
  Report Type: 
  Country: None (occurrence: None)
  Receive Date: 20100519
  Receipt Date: 20100511
  Transmission Date: 20101027
  Serious: Yes (Other)
  Sender: FDA-Public Use
  Company Number: A0789351A

PATIENT
  Sex: Female
  Weight: 106.8 kg

DRUGS (1)
  1. AVANDIA [Suspect]
     Dosage: 4MG TWICE PER DAY
     Route: 048
     Dates: start: 20000102, end: 20070101

REACTIONS (3)
  - ANGINA PECTORIS [None]
  - DYSPNOEA [None]
  - SWELLING [None]
